FAERS Safety Report 13075356 (Version 1)
Quarter: 2016Q4

REPORT INFORMATION
  Report Type: Spontaneous
  Country: None (occurrence: GB)
  Receive Date: 20161230
  Receipt Date: 20161230
  Transmission Date: 20170207
  Serious: Yes (Hospitalization)
  Sender: FDA-Public Use
  Company Number: GB-MEDAC PHARMA, INC.-1061410

PATIENT
  Sex: Female

DRUGS (1)
  1. METOJECT PEN [Suspect]
     Active Substance: METHOTREXATE

REACTIONS (3)
  - Oxygen saturation decreased [Unknown]
  - Myocardial infarction [Unknown]
  - Dyspnoea [Unknown]

NARRATIVE: CASE EVENT DATE: 2016
